FAERS Safety Report 4780985-4 (Version None)
Quarter: 2005Q3

REPORT INFORMATION
  Report Type: 
  Country: None (occurrence: None)
  Receive Date: 20050928
  Receipt Date: 20050914
  Transmission Date: 20060218
  Serious: Yes (Other)
  Sender: FDA-Public Use
  Company Number: BE-BOEHRINGER INGELHEIM PHARMACEUTICALS, INC.-2005-DE-03707GD

PATIENT

DRUGS (5)
  1. CLONIDINE [Suspect]
     Indication: POSTOPERATIVE ANALGESIA
     Route: 037
  2. PROPOFOL [Suspect]
     Indication: GENERAL ANAESTHESIA
     Dosage: TARGET CONTROL INFUSION 4 MCG/ML TO FACILITATE TRACHEAL INTUBATION, FOLLOWED BY 2 MCG/ML
     Route: 042
  3. LORMETAZEPAM [Concomitant]
     Indication: ANAESTHETIC PREMEDICATION
     Dosage: 1 MG PER DOSE
     Route: 060
  4. LIDOCAINE [Concomitant]
     Indication: INTUBATION
     Dosage: 1 MG/KG
  5. ATRACURIUM BESYLATE [Concomitant]
     Indication: INTUBATION
     Dosage: 0.5 MG/KG

REACTIONS (2)
  - CARDIOVASCULAR DISORDER [None]
  - HYPOTENSION [None]
